FAERS Safety Report 10012901 (Version 1)
Quarter: 2014Q1

REPORT INFORMATION
  Report Type: Report from Study
  Country: JP (occurrence: JP)
  Receive Date: 20140314
  Receipt Date: 20140314
  Transmission Date: 20141002
  Serious: Yes (Other)
  Sender: FDA-Public Use
  Company Number: JP-TAKEDA-2014TJP003785

PATIENT
  Age: 67 Year
  Sex: Male
  Weight: 59.8 kg

DRUGS (9)
  1. ALOGLIPTIN [Suspect]
     Indication: TYPE 2 DIABETES MELLITUS
     Dosage: 25 MG, QD
     Dates: start: 20110125, end: 20130927
  2. BASEN [Concomitant]
     Indication: TYPE 2 DIABETES MELLITUS
     Dosage: 0.6 MG, UNK
     Route: 048
     Dates: start: 20110215, end: 20110314
  3. ACTOS [Concomitant]
     Indication: TYPE 2 DIABETES MELLITUS
     Dosage: 15 MG, 1 DAY
     Route: 048
     Dates: start: 20110411, end: 20110515
  4. ACTOS [Concomitant]
     Dosage: 30 MG, 1 DAY
     Route: 048
     Dates: start: 20110516, end: 20110626
  5. VOGLIBOSE [Concomitant]
     Indication: TYPE 2 DIABETES MELLITUS
     Dosage: 0.9 MG, 1 DAY
     Route: 048
     Dates: start: 20110315, end: 20110410
  6. GLUCOBAY [Concomitant]
     Indication: TYPE 2 DIABETES MELLITUS
     Dosage: 300 MG, 1 DAY
     Route: 048
     Dates: start: 20110411, end: 20111211
  7. AMARYL [Concomitant]
     Indication: TYPE 2 DIABETES MELLITUS
     Dosage: 0.5 MG, 1 DAY
     Route: 048
     Dates: start: 20110810
  8. SEIBULE [Concomitant]
     Indication: TYPE 2 DIABETES MELLITUS
     Dosage: 225 MG, 1 DAY
     Route: 048
     Dates: start: 20111212
  9. MYSLEE [Concomitant]
     Dosage: 10 MG, 1 DAY
     Route: 048
     Dates: start: 20111017, end: 20111027

REACTIONS (1)
  - Loss of consciousness [Recovered/Resolved]
